FAERS Safety Report 13099311 (Version 4)
Quarter: 2017Q1

REPORT INFORMATION
  Report Type: Spontaneous
  Country: PL (occurrence: PL)
  Receive Date: 20170109
  Receipt Date: 20170306
  Transmission Date: 20170428
  Serious: Yes (Hospitalization, Other)
  Sender: FDA-Public Use
  Company Number: PL-GILEAD-2017-0252250

PATIENT
  Age: 19 Year
  Sex: Male
  Weight: 64 kg

DRUGS (4)
  1. ENCORTON                           /00044701/ [Concomitant]
     Active Substance: PREDNISONE
  2. POLPRIL [Concomitant]
     Active Substance: RAMIPRIL
  3. HARVONI [Suspect]
     Active Substance: LEDIPASVIR\SOFOSBUVIR
     Indication: CHRONIC HEPATITIS C
     Dosage: 1 DF, QD
     Route: 048
     Dates: start: 20161025
  4. CELLCEPT [Concomitant]
     Active Substance: MYCOPHENOLATE MOFETIL\MYCOPHENOLATE MOFETIL HYDROCHLORIDE

REACTIONS (5)
  - Nephrotic syndrome [Recovering/Resolving]
  - Thyroid hormones decreased [Unknown]
  - Hypertension [Unknown]
  - Ligament sprain [Recovering/Resolving]
  - Vitamin D deficiency [Unknown]

NARRATIVE: CASE EVENT DATE: 20161211
